FAERS Safety Report 5828198-9 (Version None)
Quarter: 2008Q3

REPORT INFORMATION
  Report Type: 
  Country: None (occurrence: None)
  Receive Date: 20080731
  Receipt Date: 20080729
  Transmission Date: 20090109
  Serious: Yes (Hospitalization)
  Sender: FDA-Public Use
  Company Number: FR-WYE-G01691108

PATIENT
  Sex: Male
  Weight: 11.2 kg

DRUGS (1)
  1. ADVIL [Suspect]
     Indication: PYREXIA
     Dosage: 2 DOSES
     Route: 048
     Dates: start: 20080123, end: 20080123

REACTIONS (4)
  - ACTIVATED PARTIAL THROMBOPLASTIN TIME PROLONGED [None]
  - GASTRITIS [None]
  - GASTROINTESTINAL HAEMORRHAGE [None]
  - LYMPHADENITIS [None]
